FAERS Safety Report 23973818 (Version 1)
Quarter: 2024Q2

REPORT INFORMATION
  Report Type: Spontaneous
  Country: FR (occurrence: FR)
  Receive Date: 20240613
  Receipt Date: 20240613
  Transmission Date: 20240716
  Serious: Yes (Other)
  Sender: FDA-Public Use
  Company Number: None

PATIENT
  Age: 65 Year
  Sex: Male

DRUGS (2)
  1. LEVOFLOXACIN [Suspect]
     Active Substance: LEVOFLOXACIN
     Indication: Device related infection
     Route: 048
     Dates: start: 20220421, end: 20220708
  2. RIFAMPIN [Suspect]
     Active Substance: RIFAMPIN
     Indication: Device related infection
     Route: 048
     Dates: start: 20220421, end: 20220708

REACTIONS (1)
  - Hepatic cytolysis [Recovered/Resolved]

NARRATIVE: CASE EVENT DATE: 20220512
